FAERS Safety Report 4798289-2 (Version None)
Quarter: 2005Q4

REPORT INFORMATION
  Report Type: 
  Country: None (occurrence: None)
  Receive Date: 20051006
  Receipt Date: 20051006
  Transmission Date: 20060501
  Serious: Yes (Life-Threatening, Hospitalization)
  Sender: FDA-Public Use
  Company Number: None

PATIENT
  Age: 61 Year
  Sex: Female
  Weight: 42 kg

DRUGS (6)
  1. RITUXIMAB [Suspect]
     Indication: NON-HODGKIN'S LYMPHOMA
     Dosage: 375 MG/M2  IV  (LAST DOSE MAY 04)
     Route: 042
     Dates: end: 20040501
  2. LORAZEPAN [Concomitant]
  3. NITROFURANTOIN [Concomitant]
  4. ENALAPRIL [Concomitant]
  5. LORATADINE [Concomitant]
  6. NASACORT [Concomitant]

REACTIONS (2)
  - CONDITION AGGRAVATED [None]
  - HEPATITIS B [None]
